FAERS Safety Report 24614589 (Version 1)
Quarter: 2024Q4

REPORT INFORMATION
  Report Type: Spontaneous
  Country: FR (occurrence: FR)
  Receive Date: 20241113
  Receipt Date: 20241113
  Transmission Date: 20250114
  Serious: Yes (Hospitalization)
  Sender: MYLAN
  Company Number: None

PATIENT
  Age: 51 Year
  Sex: Male
  Weight: 100.5 kg

DRUGS (7)
  1. KETOPROFEN [Suspect]
     Active Substance: KETOPROFEN
     Indication: Headache
     Dosage: 200 MILLIGRAM, QD (100 MG LP X 2 /DAY)
     Route: 048
     Dates: start: 20241005, end: 20241007
  2. KETOPROFEN [Suspect]
     Active Substance: KETOPROFEN
     Dosage: 200 MILLIGRAM, QD (100 MG LP X 2 /DAY
     Route: 048
     Dates: start: 20241013, end: 20241014
  3. KETOPROFEN [Suspect]
     Active Substance: KETOPROFEN
     Dosage: 200 MILLIGRAM, QD (100 MG LP X 2 /DAY)
     Route: 048
     Dates: start: 20241016, end: 20241016
  4. LOVENOX [Suspect]
     Active Substance: ENOXAPARIN SODIUM
     Indication: Thrombosis prophylaxis
     Dosage: 6000 INTERNATIONAL UNIT, QD
     Route: 058
     Dates: start: 20241004
  5. NIMODIPINE [Suspect]
     Active Substance: NIMODIPINE
     Indication: Cerebral vasoconstriction
     Dosage: 360 MILLIGRAM, QD (60 MG X6 /DAY)
     Route: 048
     Dates: start: 20241004, end: 20241009
  6. NIMODIPINE [Suspect]
     Active Substance: NIMODIPINE
     Dosage: 360 MILLIGRAM, QD (60 MG X6 /DAY)
     Route: 048
     Dates: start: 20241013
  7. ACETAMINOPHEN [Concomitant]
     Active Substance: ACETAMINOPHEN
     Indication: Product used for unknown indication
     Dosage: 2 GRAM, QD (1 G X2/DAY)
     Route: 048
     Dates: start: 20241004, end: 20241012

REACTIONS (1)
  - Mixed liver injury [Not Recovered/Not Resolved]

NARRATIVE: CASE EVENT DATE: 20241010
